FAERS Safety Report 20485914 (Version 2)
Quarter: 2022Q1

REPORT INFORMATION
  Report Type: Spontaneous
  Country: US (occurrence: US)
  Receive Date: 20220217
  Receipt Date: 20220228
  Transmission Date: 20220424
  Serious: No
  Sender: FDA-Public Use
  Company Number: US-SANOFI-00970656

PATIENT
  Age: 61 Year
  Sex: Male

DRUGS (1)
  1. DUPIXENT [Suspect]
     Active Substance: DUPILUMAB

REACTIONS (3)
  - Injection site pain [Unknown]
  - Sinus headache [Not Recovered/Not Resolved]
  - Pain in extremity [Unknown]
